FAERS Safety Report 4976329-5 (Version None)
Quarter: 2006Q2

REPORT INFORMATION
  Report Type: 
  Country: None (occurrence: None)
  Receive Date: 20060412
  Receipt Date: 20060403
  Transmission Date: 20061013
  Serious: Yes (Hospitalization, Other)
  Sender: FDA-Public Use
  Company Number: 2006046920

PATIENT
  Age: 58 Year
  Sex: Male
  Weight: 84.369 kg

DRUGS (5)
  1. LIPITOR [Suspect]
     Indication: ILL-DEFINED DISORDER
     Dosage: ORAL
     Route: 048
     Dates: start: 20010101, end: 20060220
  2. TOPROL-XL [Concomitant]
  3. ENALAPRIL MALEATE [Concomitant]
  4. DIGOXIN [Concomitant]
  5. WARFARIN SODIUM [Concomitant]

REACTIONS (8)
  - AORTIC VALVE DISEASE [None]
  - ASTHENIA [None]
  - CEREBRAL DISORDER [None]
  - CONVULSION [None]
  - FLUID RETENTION [None]
  - ILL-DEFINED DISORDER [None]
  - MYALGIA [None]
  - WEIGHT INCREASED [None]
